FAERS Safety Report 6903838-1 (Version None)
Quarter: 2010Q3

REPORT INFORMATION
  Report Type: 
  Country: None (occurrence: None)
  Receive Date: 20100804
  Receipt Date: 20090120
  Transmission Date: 20110219
  Serious: No
  Sender: FDA-Public Use
  Company Number: US-PFIZER INC-2008099181

PATIENT
  Sex: Female
  Weight: 78.181 kg

DRUGS (2)
  1. LYRICA [Suspect]
     Indication: NEURALGIA
     Dosage: 75 MG, 2X/DAY
     Dates: start: 20080901
  2. CELEBREX [Concomitant]
     Indication: ARTHRITIS

REACTIONS (1)
  - WHITE BLOOD CELL COUNT INCREASED [None]
